FAERS Safety Report 8576241-9 (Version None)
Quarter: 2012Q3

REPORT INFORMATION
  Report Type: 
  Country: None (occurrence: None)
  Receive Date: 20120807
  Receipt Date: 20120803
  Transmission Date: 20120928
  Serious: Yes (Death, Other)
  Sender: FDA-Public Use
  Company Number: VE-PFIZER INC-2012165132

PATIENT
  Age: 49 Year
  Sex: Male

DRUGS (1)
  1. CADUET [Suspect]
     Dosage: UNK, 1X/DAY
     Route: 048

REACTIONS (2)
  - HEAD INJURY [None]
  - ROAD TRAFFIC ACCIDENT [None]
